FAERS Safety Report 20497210 (Version 2)
Quarter: 2022Q1

REPORT INFORMATION
  Report Type: Other
  Country: US (occurrence: US)
  Receive Date: 20220221
  Receipt Date: 20220309
  Transmission Date: 20220423
  Serious: Yes (Other)
  Sender: FDA-Public Use
  Company Number: US-SUNOVION-2022SUN000523

PATIENT
  Sex: Female

DRUGS (1)
  1. APTIOM [Suspect]
     Active Substance: ESLICARBAZEPINE ACETATE
     Dosage: UNK (HIGHER THAN RECOMMENDED DOSE)
     Route: 048

REACTIONS (5)
  - Seizure [Unknown]
  - Amnesia [Unknown]
  - Rash [Unknown]
  - Prescribed overdose [Unknown]
  - Off label use [Unknown]
